FAERS Safety Report 4685311-7 (Version None)
Quarter: 2005Q2

REPORT INFORMATION
  Report Type: 
  Country: None (occurrence: None)
  Receive Date: 20050607
  Receipt Date: 20050607
  Transmission Date: 20051028
  Serious: Yes (Other)
  Sender: FDA-Public Use
  Company Number: None

PATIENT
  Age: 63 Year
  Sex: Male
  Weight: 52.1637 kg

DRUGS (2)
  1. DURAGESIC-75 [Suspect]
     Indication: POST LAMINECTOMY SYNDROME
     Dosage: 75 MCG
     Dates: start: 20050510, end: 20050606
  2. DURAGESIC-75 [Suspect]
     Indication: RADICULOPATHY
     Dosage: 75 MCG
     Dates: start: 20050510, end: 20050606

REACTIONS (2)
  - CONDITION AGGRAVATED [None]
  - PHARMACEUTICAL PRODUCT COMPLAINT [None]
